FAERS Safety Report 14620371 (Version 1)
Quarter: 2018Q1

REPORT INFORMATION
  Report Type: Spontaneous
  Country: CA (occurrence: CA)
  Receive Date: 20180309
  Receipt Date: 20180309
  Transmission Date: 20180509
  Serious: Yes (Other)
  Sender: FDA-Public Use
  Company Number: CA-VERTEX PHARMACEUTICALS-2018-001613

PATIENT
  Age: 30 Year
  Sex: Female

DRUGS (1)
  1. ORKAMBI [Suspect]
     Active Substance: IVACAFTOR\LUMACAFTOR
     Indication: CYSTIC FIBROSIS
     Dosage: FULL DOSE
     Route: 048
     Dates: start: 201710, end: 201712

REACTIONS (4)
  - Diffuse panbronchiolitis [Recovered/Resolved]
  - Fungal infection [Unknown]
  - Forced expiratory volume decreased [Unknown]
  - Lung transplant [Unknown]

NARRATIVE: CASE EVENT DATE: 201710
